FAERS Safety Report 7003042-5 (Version None)
Quarter: 2010Q3

REPORT INFORMATION
  Report Type: 
  Country: None (occurrence: None)
  Receive Date: 20100920
  Receipt Date: 20100428
  Transmission Date: 20110219
  Serious: No
  Sender: FDA-Public Use
  Company Number: US-ASTRAZENECA-2010SE19220

PATIENT
  Age: 56 Year
  Sex: Female
  Weight: 61.2 kg

DRUGS (6)
  1. SEROQUEL [Suspect]
     Indication: DEPRESSION
     Route: 048
  2. SEROQUEL [Suspect]
     Indication: INSOMNIA
     Route: 048
  3. LISINOPRIL [Concomitant]
  4. COMBIVENT [Concomitant]
  5. ADVAIR DISKUS 100/50 [Concomitant]
  6. BREATHING TREATMENT [Concomitant]

REACTIONS (4)
  - MIDDLE INSOMNIA [None]
  - SLEEP-RELATED EATING DISORDER [None]
  - SOMNOLENCE [None]
  - WEIGHT INCREASED [None]
